FAERS Safety Report 8036544-3 (Version None)
Quarter: 2012Q1

REPORT INFORMATION
  Report Type: 
  Country: None (occurrence: None)
  Receive Date: 20120111
  Receipt Date: 20120106
  Transmission Date: 20120608
  Serious: Yes (Other)
  Sender: FDA-Public Use
  Company Number: US-PFIZER INC-2012004923

PATIENT
  Sex: Female
  Weight: 74.83 kg

DRUGS (4)
  1. CHANTIX [Suspect]
     Indication: SMOKING CESSATION THERAPY
     Dosage: 0.5 MG, 1X/DAY
     Route: 048
     Dates: start: 20100101, end: 20100101
  2. ZANAFLEX [Concomitant]
     Indication: SPINAL DISORDER
     Dosage: UNK
  3. CHANTIX [Suspect]
     Dosage: UNK
     Route: 048
     Dates: start: 20100101, end: 20101208
  4. MORPHINE [Concomitant]
     Indication: SPINAL DISORDER
     Dosage: UNK

REACTIONS (2)
  - SCOLIOSIS [None]
  - OSTEOARTHRITIS [None]
